FAERS Safety Report 9073454 (Version 1)
Quarter: 2013Q1

REPORT INFORMATION
  Report Type: Report from Study
  Country: US (occurrence: US)
  Receive Date: 20130129
  Receipt Date: 20130129
  Transmission Date: 20140127
  Serious: No
  Sender: FDA-Public Use
  Company Number: US-ABBOTT-12P-163-0937478-00

PATIENT
  Age: 53 Year
  Sex: Female

DRUGS (10)
  1. HUMIRA 40 MG/0.8 ML PEN [Suspect]
     Indication: RHEUMATOID ARTHRITIS
     Route: 058
     Dates: start: 20120518
  2. SULFASALAZINE DR [Concomitant]
     Indication: RHEUMATOID ARTHRITIS
     Dosage: 500 MG, 5 TABS DAILY
     Route: 048
  3. NORTRIPTYLINE [Concomitant]
     Indication: DEPRESSION
     Dosage: AT BEDTIME
     Route: 048
  4. LOSARTAN HCTZ [Concomitant]
     Indication: HYPERTENSION
     Dosage: 50/12.5 MG, 2 TABS DAILY
     Route: 048
  5. LORAZEPAM [Concomitant]
     Indication: ANXIETY
     Dosage: 1 MG, 2 TABS DAILY
     Route: 048
  6. ESTROPIPATE [Concomitant]
     Indication: HORMONE REPLACEMENT THERAPY
     Dosage: 0.75 MG DAILY
     Route: 048
  7. BABY ASPIRIN [Concomitant]
     Indication: CARDIOVASCULAR EVENT PROPHYLAXIS
     Dosage: 81 MG DAILY
     Route: 048
  8. GAS X [Concomitant]
     Indication: PRODUCT USED FOR UNKNOWN INDICATION
     Route: 048
  9. CLARITIN [Concomitant]
     Indication: PRODUCT USED FOR UNKNOWN INDICATION
     Route: 048
  10. HYDROCODONE/ACET [Concomitant]
     Indication: PRODUCT USED FOR UNKNOWN INDICATION
     Dosage: 10/650 MG, AS REQUIRED
     Route: 048

REACTIONS (4)
  - Malaise [Recovered/Resolved]
  - Confusional state [Recovered/Resolved]
  - Feeling abnormal [Recovered/Resolved]
  - Fatigue [Recovered/Resolved]
